FAERS Safety Report 5152843-7 (Version None)
Quarter: 2006Q4

REPORT INFORMATION
  Report Type: 
  Country: None (occurrence: None)
  Receive Date: 20060918
  Receipt Date: 20060327
  Transmission Date: 20070319
  Serious: Yes (Other)
  Sender: FDA-Public Use
  Company Number: PHEH2005US13817

PATIENT
  Age: 51 Year
  Sex: Female

DRUGS (4)
  1. FEMARA [Suspect]
     Indication: BREAST CANCER
  2. FOSAMAX [Concomitant]
  3. CALCIUM (CALCIUM) [Concomitant]
  4. ATIVAN [Concomitant]

REACTIONS (3)
  - OSTEOPENIA [None]
  - OSTEOPOROSIS [None]
  - WEIGHT INCREASED [None]
